FAERS Safety Report 9701313 (Version 1)
Quarter: 2013Q4

REPORT INFORMATION
  Report Type: Spontaneous
  Country: US (occurrence: None)
  Receive Date: 20131120
  Receipt Date: 20131120
  Transmission Date: 20140711
  Serious: Yes (Hospitalization)
  Sender: FDA-Public Use
  Company Number: None

PATIENT
  Age: 59 Year
  Sex: Female
  Weight: 131.8 kg

DRUGS (7)
  1. METHOTREXATE [Suspect]
  2. PROCARBAZINE [Suspect]
  3. RITUXIMAB (MOAB C2B8 ANTI CD20, CHIMERIC) [Suspect]
  4. VINCRISTINE SULFATE [Suspect]
  5. INSULIN [Concomitant]
  6. KEPPRA [Concomitant]
  7. PROTONIX [Concomitant]

REACTIONS (3)
  - Rash generalised [None]
  - Alanine aminotransferase increased [None]
  - Aspartate aminotransferase increased [None]
